FAERS Safety Report 4390308-0 (Version None)
Quarter: 2004Q2

REPORT INFORMATION
  Report Type: 
  Country: None (occurrence: None)
  Receive Date: 20040630
  Receipt Date: 20040617
  Transmission Date: 20050107
  Serious: Yes (Hospitalization)
  Sender: FDA-Public Use
  Company Number: FRWYE799203JUN04

PATIENT
  Age: 72 Year
  Sex: Female

DRUGS (5)
  1. RAPAMUNE [Suspect]
     Indication: PROPHYLAXIS AGAINST TRANSPLANT REJECTION
     Dosage: 15 MG ON DAY 0 AND THEN 5 MG DAILY, ORAL
     Route: 048
     Dates: start: 20040331, end: 20040427
  2. SOLUPRED   (PREDNISOLONE SODIUM SULFOBENZOATE) [Suspect]
  3. CALCITRIOL [Concomitant]
  4. AMLODIPINE BESYLATE [Concomitant]
  5. ATORVASTATIN CALCIUM [Concomitant]

REACTIONS (5)
  - CYTOLYTIC HEPATITIS [None]
  - INTERSTITIAL LUNG DISEASE [None]
  - OEDEMA PERIPHERAL [None]
  - PEMPHIGUS [None]
  - PNEUMONITIS [None]
